FAERS Safety Report 4423603-7 (Version None)
Quarter: 2004Q3

REPORT INFORMATION
  Report Type: 
  Country: None (occurrence: None)
  Receive Date: 20040805
  Receipt Date: 20040723
  Transmission Date: 20050211
  Serious: Yes (Hospitalization)
  Sender: FDA-Public Use
  Company Number: 04P-167-0267946-00

PATIENT
  Age: 80 Year
  Sex: Female

DRUGS (6)
  1. WARFARIN SODIUM [Suspect]
     Indication: ATRIAL FIBRILLATION
     Dosage: 1 MG, PER ORAL
     Route: 048
  2. DIGOXIN [Concomitant]
  3. SOTALOL HCL [Concomitant]
  4. THYROXINE [Concomitant]
  5. NIFEDIPINE [Concomitant]
  6. CANDESARTAN [Concomitant]

REACTIONS (12)
  - ANOREXIA [None]
  - AORTIC ATHEROSCLEROSIS [None]
  - AORTIC DISSECTION [None]
  - AORTIC THROMBOSIS [None]
  - BACK PAIN [None]
  - CHEST PAIN [None]
  - COMPUTERISED TOMOGRAM ABNORMAL [None]
  - DYSPNOEA [None]
  - HAEMORRHAGE [None]
  - INTERNATIONAL NORMALISED RATIO INCREASED [None]
  - MALAISE [None]
  - WEIGHT DECREASED [None]
